FAERS Safety Report 8266655-9 (Version None)
Quarter: 2012Q2

REPORT INFORMATION
  Report Type: 
  Country: None (occurrence: None)
  Receive Date: 20120407
  Receipt Date: 20120328
  Transmission Date: 20120825
  Serious: Yes (Hospitalization)
  Sender: FDA-Public Use
  Company Number: BR-ASTRAZENECA-2012SE21339

PATIENT
  Age: 61 Year
  Sex: Female
  Weight: 60 kg

DRUGS (3)
  1. CRESTOR [Suspect]
     Route: 048
     Dates: start: 20120101
  2. ASPIRIN [Concomitant]
     Indication: ARTERIOSCLEROSIS
     Dosage: OD
     Route: 048
     Dates: start: 20090601
  3. CRESTOR [Suspect]
     Indication: ARTERIOSCLEROSIS
     Route: 048
     Dates: start: 20090601, end: 20120101

REACTIONS (2)
  - BLOOD CHOLESTEROL INCREASED [None]
  - ANGIOPATHY [None]
